FAERS Safety Report 10142406 (Version 4)
Quarter: 2014Q4

REPORT INFORMATION
  Report Type: Report from Study
  Country: CA (occurrence: CA)
  Receive Date: 20140430
  Receipt Date: 20141125
  Transmission Date: 20150528
  Serious: Yes (Hospitalization, Other)
  Sender: FDA-Public Use
  Company Number: CA-ROCHE-1228930

PATIENT
  Age: 75 Year
  Sex: Female
  Weight: 63.5 kg

DRUGS (28)
  1. ACTONEL [Suspect]
     Active Substance: RISEDRONATE SODIUM
     Indication: PRODUCT USED FOR UNKNOWN INDICATION
     Route: 065
  2. FOLIC ACID. [Concomitant]
     Active Substance: FOLIC ACID
  3. ASPIRIN. [Concomitant]
     Active Substance: ASPIRIN
  4. DIPHENHYDRAMINE HCL [Concomitant]
     Active Substance: DIPHENHYDRAMINE HYDROCHLORIDE
     Indication: PREMEDICATION
     Route: 048
     Dates: start: 20130522
  5. METHYLPREDNISOLONE. [Concomitant]
     Active Substance: METHYLPREDNISOLONE
     Indication: PREMEDICATION
     Route: 042
     Dates: start: 20130522
  6. HUMALOG [Concomitant]
     Active Substance: INSULIN LISPRO
  7. BISOPROLOL [Concomitant]
     Active Substance: BISOPROLOL
  8. SULPHASALAZINE [Concomitant]
     Active Substance: SULFASALAZINE
  9. VITAMIN B12 [Concomitant]
     Active Substance: CYANOCOBALAMIN
  10. AVAPRO [Concomitant]
     Active Substance: IRBESARTAN
  11. FUROSEMIDE. [Concomitant]
     Active Substance: FUROSEMIDE
  12. PARIET [Concomitant]
     Active Substance: RABEPRAZOLE SODIUM
  13. ACETAMINOPHEN. [Concomitant]
     Active Substance: ACETAMINOPHEN
     Indication: PREMEDICATION
     Route: 048
     Dates: start: 20130522
  14. RHINOCORT [Concomitant]
     Active Substance: BUDESONIDE
     Route: 065
  15. LANTUS [Concomitant]
     Active Substance: INSULIN GLARGINE
  16. BETOPTIC [Concomitant]
     Active Substance: BETAXOLOL HYDROCHLORIDE
  17. DOMPERIDONE [Concomitant]
     Active Substance: DOMPERIDONE
  18. FENTANYL. [Concomitant]
     Active Substance: FENTANYL
  19. LORAZEPAM. [Concomitant]
     Active Substance: LORAZEPAM
     Dosage: AS REQUIRED
     Route: 065
  20. SENOKOT [Concomitant]
     Active Substance: SENNOSIDES
  21. SYNTHROID [Concomitant]
     Active Substance: LEVOTHYROXINE SODIUM
  22. PLAQUENIL [Concomitant]
     Active Substance: HYDROXYCHLOROQUINE SULFATE
     Dosage: FOR 1 YEAR
     Route: 065
  23. CHONDROITIN SULFATE (BOVINE)\GLUCOSAMINE SULFATE [Concomitant]
     Active Substance: CHONDROITIN SULFATE (BOVINE)\GLUCOSAMINE SULFATE
  24. LIPITOR [Concomitant]
     Active Substance: ATORVASTATIN CALCIUM
  25. NITROGLYCERINE SPRAY [Concomitant]
     Dosage: AS REQUIRED
     Route: 065
  26. SOFLAX (CANADA) [Concomitant]
  27. RITUXAN [Suspect]
     Active Substance: RITUXIMAB
     Indication: RHEUMATOID ARTHRITIS
     Dosage: DAY 1 AND DAY 15?LAST DOSE : 11/DEC/2013
     Route: 042
     Dates: start: 20130522
  28. LYRICA [Concomitant]
     Active Substance: PREGABALIN

REACTIONS (10)
  - Cellulitis [Recovered/Resolved]
  - Femur fracture [Unknown]
  - Osteosclerosis [Unknown]
  - Blood pressure increased [Unknown]
  - Dyspnoea [Unknown]
  - Fall [Unknown]
  - Blood pressure diastolic decreased [Unknown]
  - Blood glucose abnormal [Not Recovered/Not Resolved]
  - Anxiety [Unknown]
  - Arteriosclerosis [Unknown]

NARRATIVE: CASE EVENT DATE: 20130522
